FAERS Safety Report 22196105 (Version 1)
Quarter: 2023Q2

REPORT INFORMATION
  Report Type: Spontaneous
  Country: AR (occurrence: AR)
  Receive Date: 20230411
  Receipt Date: 20230411
  Transmission Date: 20230722
  Serious: Yes (Hospitalization)
  Sender: FDA-Public Use
  Company Number: AR-002147023-NVSC2023AR078328

PATIENT

DRUGS (2)
  1. RUXOLITINIB [Suspect]
     Active Substance: RUXOLITINIB
     Indication: Polycythaemia vera
     Dosage: 15 MG, BID (TWICE DAILY)
     Route: 048
     Dates: start: 201512
  2. RUXOLITINIB [Suspect]
     Active Substance: RUXOLITINIB
     Indication: Myelofibrosis

REACTIONS (5)
  - Anaemia [Unknown]
  - Hernia [Unknown]
  - Splenomegaly [Unknown]
  - Swelling [Unknown]
  - Skin cancer [Unknown]

NARRATIVE: CASE EVENT DATE: 20200101
